FAERS Safety Report 4975796-0 (Version None)
Quarter: 2006Q2

REPORT INFORMATION
  Report Type: 
  Country: None (occurrence: None)
  Receive Date: 20060411
  Receipt Date: 20060323
  Transmission Date: 20061013
  Serious: No
  Sender: FDA-Public Use
  Company Number: SI200603006278

PATIENT
  Age: 16 Year
  Sex: Male

DRUGS (1)
  1. ZYPREXA [Suspect]
     Indication: DELUSIONAL DISORDER, PERSECUTORY TYPE
     Dosage: 5 MG, ORAL
     Route: 048
     Dates: start: 20051110, end: 20051215

REACTIONS (4)
  - BLOOD BILIRUBIN INCREASED [None]
  - DIZZINESS [None]
  - EPISTAXIS [None]
  - FATIGUE [None]
